FAERS Safety Report 5900392-8 (Version None)
Quarter: 2008Q3

REPORT INFORMATION
  Report Type: 
  Country: None (occurrence: None)
  Receive Date: 20080926
  Receipt Date: 20080915
  Transmission Date: 20090109
  Serious: Yes (Hospitalization, Other)
  Sender: FDA-Public Use
  Company Number: FR-PFIZER INC-2008068184

PATIENT
  Sex: Female
  Weight: 60 kg

DRUGS (7)
  1. SU-011,248 [Suspect]
     Indication: NON-SMALL CELL LUNG CANCER METASTATIC
     Route: 048
     Dates: start: 20080715, end: 20080812
  2. SU-011,248 [Suspect]
     Route: 048
     Dates: start: 20080828
  3. RABEPRAZOLE SODIUM [Concomitant]
     Route: 048
     Dates: start: 20080731
  4. BISOPROLOL FUMARATE [Concomitant]
     Route: 048
  5. SODIUM ALGINATE [Concomitant]
     Route: 048
     Dates: start: 20080731
  6. DEXTROPROPOXYPHENE [Concomitant]
     Route: 048
     Dates: start: 20080731
  7. SODIUM BICARBONATE [Concomitant]
     Route: 048
     Dates: start: 20080731

REACTIONS (1)
  - PYELONEPHRITIS [None]
